FAERS Safety Report 16293729 (Version 1)
Quarter: 2019Q2

REPORT INFORMATION
  Report Type: Spontaneous
  Country: US (occurrence: US)
  Receive Date: 20190509
  Receipt Date: 20190509
  Transmission Date: 20190711
  Serious: Yes (Other)
  Sender: FDA-Public Use
  Company Number: US-DUSA PHARMACEUTICALS, INC.-2066858

PATIENT
  Sex: Male

DRUGS (2)
  1. BLU-U (DEVICE) [Suspect]
     Active Substance: DEVICE
  2. LEVULAN KERASTICK [Suspect]
     Active Substance: AMINOLEVULINIC ACID HYDROCHLORIDE
     Indication: PRODUCT USED FOR UNKNOWN INDICATION

REACTIONS (1)
  - Eye burns [Recovered/Resolved]
